FAERS Safety Report 19839891 (Version 9)
Quarter: 2022Q1

REPORT INFORMATION
  Report Type: Report from Study
  Country: GB (occurrence: GB)
  Receive Date: 20210915
  Receipt Date: 20220112
  Transmission Date: 20220424
  Serious: Yes (Life-Threatening, Hospitalization, Other)
  Sender: FDA-Public Use
  Company Number: GB-002147023-NVSC2021GB201953

PATIENT
  Age: 78 Year
  Sex: Male
  Weight: 84 kg

DRUGS (25)
  1. ENALAPRIL [Suspect]
     Active Substance: ENALAPRIL
     Indication: Blood pressure measurement
     Dosage: UNK
     Route: 065
     Dates: start: 20051006, end: 20210902
  2. ENALAPRIL [Suspect]
     Active Substance: ENALAPRIL
     Dosage: UNK
     Route: 065
     Dates: start: 20051006, end: 20211010
  3. ENALAPRIL [Suspect]
     Active Substance: ENALAPRIL
     Dosage: UNK
     Route: 065
     Dates: start: 20210902, end: 20211010
  4. OMEPRAZOLE [Suspect]
     Active Substance: OMEPRAZOLE
     Indication: Acidosis
     Dosage: UNK
     Route: 065
     Dates: start: 20080606, end: 20210902
  5. OMEPRAZOLE [Suspect]
     Active Substance: OMEPRAZOLE
     Dosage: UNK
     Route: 065
     Dates: start: 20080606, end: 20211010
  6. INCLISIRAN [Suspect]
     Active Substance: INCLISIRAN
     Indication: Arteriosclerosis
     Dosage: UNK
  7. AMOXICILLIN [Concomitant]
     Active Substance: AMOXICILLIN
     Indication: Lower respiratory tract infection
     Dosage: UNK
     Route: 065
     Dates: start: 20210823, end: 20210830
  8. BISOPROLOL [Concomitant]
     Active Substance: BISOPROLOL
     Indication: Myocardial ischaemia
     Dosage: UNK
     Route: 065
     Dates: start: 20190328
  9. CLOPIDOGREL [Concomitant]
     Active Substance: CLOPIDOGREL BISULFATE
     Indication: Myocardial ischaemia
     Dosage: UNK
     Route: 065
     Dates: start: 20080606
  10. DOXYCYCLINE [Concomitant]
     Active Substance: DOXYCYCLINE
     Indication: Lower respiratory tract infection
     Dosage: UNK
     Route: 065
     Dates: start: 20210831
  11. FELODIPINE [Concomitant]
     Active Substance: FELODIPINE
     Indication: Blood pressure abnormal
     Dosage: UNK
     Route: 065
     Dates: start: 20201202, end: 20210902
  12. NICORANDIL [Concomitant]
     Active Substance: NICORANDIL
     Indication: Myocardial ischaemia
     Dosage: UNK
     Route: 065
     Dates: start: 20180504
  13. SPIRONOLACTONE [Concomitant]
     Active Substance: SPIRONOLACTONE
     Indication: Blood pressure abnormal
     Dosage: UNK
     Route: 065
     Dates: start: 20171215, end: 20210902
  14. SODIUM CHLORIDE [Concomitant]
     Active Substance: SODIUM CHLORIDE
     Dosage: UNK
  15. ASPIRIN [Concomitant]
     Active Substance: ASPIRIN
     Indication: Postoperative care
     Dosage: START DATE: 11-OCT-2021
  16. ATORVASTATIN [Concomitant]
     Active Substance: ATORVASTATIN
     Indication: Product used for unknown indication
     Dosage: START DATE: 10-OCT-2021
     Dates: end: 20211019
  17. EZETIMIBE [Concomitant]
     Active Substance: EZETIMIBE
     Indication: Product used for unknown indication
     Dosage: START DATE: 10-OCT-2021
  18. FUROSEMIDE [Concomitant]
     Active Substance: FUROSEMIDE
     Indication: Fluid retention
     Dosage: START DATE: 10-OCT-2021
     Dates: end: 20211024
  19. LANSOPRAZOLE [Concomitant]
     Active Substance: LANSOPRAZOLE
     Indication: Acidosis
     Dosage: START DATE: 10-OCT-2021
  20. POLYETHYLENE GLYCOL 3350\POTASSIUM CHLORIDE\SODIUM BICARBONATE\SODIUM [Concomitant]
     Active Substance: POLYETHYLENE GLYCOL 3350\POTASSIUM CHLORIDE\SODIUM BICARBONATE\SODIUM CHLORIDE
     Indication: Constipation
     Dosage: START DATE: 10-OCT-2021
     Dates: end: 20211021
  21. ACETAMINOPHEN [Concomitant]
     Active Substance: ACETAMINOPHEN
     Indication: Pain
     Dosage: START DATE: 10-OCT-2021
     Dates: end: 20211030
  22. RAMIPRIL [Concomitant]
     Active Substance: RAMIPRIL
     Indication: Blood pressure abnormal
     Dosage: START DATE: 10-OCT-2021
  23. ALBUTEROL [Concomitant]
     Active Substance: ALBUTEROL
     Indication: Chronic obstructive pulmonary disease
     Dosage: START DATE: 10-OCT-2021
  24. POTASSIUM BICARBONATE\POTASSIUM CHLORIDE [Concomitant]
     Active Substance: POTASSIUM BICARBONATE\POTASSIUM CHLORIDE
     Indication: Blood potassium decreased
     Dosage: START DATE: 16-OCT-2021
     Dates: end: 20211017
  25. SENNA [Concomitant]
     Active Substance: SENNA LEAF\SENNOSIDES\SENNOSIDES A AND B
     Indication: Constipation
     Dosage: START DATE: 10-OCT-2021
     Dates: end: 20211021

REACTIONS (4)
  - Respiratory tract infection [Not Recovered/Not Resolved]
  - Coronary artery disease [Recovered/Resolved]
  - Dyspnoea [Unknown]
  - Hyponatraemia [Unknown]

NARRATIVE: CASE EVENT DATE: 20210831
